FAERS Safety Report 17872229 (Version 2)
Quarter: 2020Q2

REPORT INFORMATION
  Report Type: Report from Study
  Country: US (occurrence: US)
  Receive Date: 20200608
  Receipt Date: 20200624
  Transmission Date: 20200714
  Serious: Yes (Hospitalization, Other)
  Sender: FDA-Public Use
  Company Number: US-B.I. PHARMACEUTICALS,INC./RIDGEFIELD-2019-BI-117032

PATIENT
  Age: 82 Year
  Sex: Female

DRUGS (2)
  1. OFEV [Suspect]
     Active Substance: NINTEDANIB
     Indication: IDIOPATHIC PULMONARY FIBROSIS
     Route: 048
     Dates: start: 20151119
  2. OFEV [Suspect]
     Active Substance: NINTEDANIB
     Dosage: 150 MG BY MOUTH TWICE DAILY DECREASE TO 150 MG ONCE A DAY
     Route: 048
     Dates: start: 201912

REACTIONS (9)
  - Discoloured vomit [Unknown]
  - Myocardial infarction [Unknown]
  - Diarrhoea [Unknown]
  - Oesophageal haemorrhage [Unknown]
  - Gastric haemorrhage [Recovered/Resolved]
  - Nausea [Unknown]
  - Diarrhoea [Unknown]
  - Hypotension [Recovered/Resolved]
  - Malaise [Unknown]

NARRATIVE: CASE EVENT DATE: 20191127
